FAERS Safety Report 6424359-9 (Version None)
Quarter: 2009Q4

REPORT INFORMATION
  Report Type: 
  Country: None (occurrence: None)
  Receive Date: 20091103
  Receipt Date: 20091022
  Transmission Date: 20100525
  Serious: Yes (Other)
  Sender: FDA-Public Use
  Company Number: US-JNJFOC-20091007694

PATIENT
  Age: 68 Year
  Sex: Female
  Weight: 76.66 kg

DRUGS (3)
  1. TYLENOL ALLERGY MULTI-SYMPTOM COOL BURST [Suspect]
     Route: 048
  2. TYLENOL ALLERGY MULTI-SYMPTOM COOL BURST [Suspect]
     Dosage: 2 CAPLETS AT 8 AM, 1 PM AND 6:30 PM
     Route: 048
  3. TYLENOL ALLERGY MULTI-SYMPTOM COOL BURST [Suspect]
     Indication: MULTIPLE ALLERGIES
     Route: 048

REACTIONS (1)
  - BLOOD PRESSURE INCREASED [None]
